FAERS Safety Report 5309199-6 (Version None)
Quarter: 2007Q2

REPORT INFORMATION
  Report Type: 
  Country: None (occurrence: None)
  Receive Date: 20070423
  Receipt Date: 20070411
  Transmission Date: 20071010
  Serious: Yes (Other)
  Sender: FDA-Public Use
  Company Number: 2007AL001445

PATIENT
  Age: 49 Year
  Sex: Male
  Weight: 157.8518 kg

DRUGS (10)
  1. GLYBURIDE [Suspect]
     Indication: DIABETES MELLITUS
     Dosage: BID; PO
     Route: 048
     Dates: start: 19970101
  2. SIMVASTATIN [Concomitant]
  3. ABILIFY [Concomitant]
  4. ZIPRASIDONE HCL [Concomitant]
  5. METOPROLOL SUCCINATE [Concomitant]
  6. PIOGLITAZONE [Concomitant]
  7. LISINOPRIL [Concomitant]
  8. ARIPIPRAZOLE [Concomitant]
  9. VARDENAFIL [Concomitant]
  10. OXYBUTYNIN CHLORIDE [Concomitant]

REACTIONS (14)
  - BRONCHITIS [None]
  - DEPRESSION [None]
  - DIARRHOEA [None]
  - FATIGUE [None]
  - HEART RATE IRREGULAR [None]
  - INCORRECT DOSE ADMINISTERED [None]
  - KERATOCONJUNCTIVITIS SICCA [None]
  - MYALGIA [None]
  - OBESITY [None]
  - SOMNOLENCE [None]
  - SUICIDE ATTEMPT [None]
  - TACHYCARDIA [None]
  - VISION BLURRED [None]
  - WEIGHT INCREASED [None]
